FAERS Safety Report 16836453 (Version 3)
Quarter: 2019Q4

REPORT INFORMATION
  Report Type: Spontaneous
  Country: US (occurrence: US)
  Receive Date: 20190921
  Receipt Date: 20191030
  Transmission Date: 20200122
  Serious: No
  Sender: FDA-Public Use
  Company Number: US-009507513-1909USA007243

PATIENT
  Sex: Female

DRUGS (4)
  1. PROVENTIL [Suspect]
     Active Substance: ALBUTEROL
     Indication: ASTHMA
     Dosage: 2 PUFFS EVERY DAY
     Route: 055
  2. PROVENTIL [Suspect]
     Active Substance: ALBUTEROL
     Dosage: 2 PUFFS EVERY DAY
     Route: 055
  3. PROVENTIL [Suspect]
     Active Substance: ALBUTEROL
     Dosage: 2 PUFFS EVERY DAY
     Route: 055
  4. FLOVENT [Concomitant]
     Active Substance: FLUTICASONE PROPIONATE
     Dosage: UNK

REACTIONS (3)
  - Sinusitis [Not Recovered/Not Resolved]
  - Poor quality device used [Unknown]
  - Product quality issue [Not Recovered/Not Resolved]
